FAERS Safety Report 12038825 (Version 1)
Quarter: 2016Q1

REPORT INFORMATION
  Report Type: Spontaneous
  Country: US (occurrence: None)
  Receive Date: 20160205
  Receipt Date: 20160205
  Transmission Date: 20160526
  Serious: No
  Sender: FDA-Public Use
  Company Number: None

PATIENT
  Age: 56 Year
  Sex: Female

DRUGS (12)
  1. DHA [Concomitant]
     Active Substance: DIETARY SUPPLEMENT
  2. GENOTROPIN [Suspect]
     Active Substance: SOMATROPIN
     Indication: HYPOPITUITARISM
     Route: 058
  3. ESTRING MIS [Concomitant]
  4. LEXAPRO [Concomitant]
     Active Substance: ESCITALOPRAM OXALATE
  5. TESTO [Concomitant]
  6. PROGESTERONE. [Concomitant]
     Active Substance: PROGESTERONE
  7. ALPRAZOLAM. [Concomitant]
     Active Substance: ALPRAZOLAM
  8. A-HYDROCORT [Concomitant]
     Active Substance: HYDROCORTISONE SODIUM SUCCINATE
  9. ESTRADIOL. [Concomitant]
     Active Substance: ESTRADIOL
  10. GENOTROPIN [Suspect]
     Active Substance: SOMATROPIN
     Indication: HYPOPITUITARISM
     Route: 058
     Dates: start: 20151217
  11. MULTIVITAMIN [Concomitant]
     Active Substance: VITAMINS
  12. NATUREE THROI [Concomitant]

REACTIONS (2)
  - Palpitations [None]
  - Drug ineffective [None]

NARRATIVE: CASE EVENT DATE: 201601
